FAERS Safety Report 9703999 (Version 1)
Quarter: 2013Q4

REPORT INFORMATION
  Report Type: Spontaneous
  Country: US (occurrence: US)
  Receive Date: 20131122
  Receipt Date: 20131122
  Transmission Date: 20140711
  Serious: No
  Sender: FDA-Public Use
  Company Number: US-ASTRAZENECA-2013SE83933

PATIENT
  Age: 62 Year
  Sex: Male

DRUGS (3)
  1. SYMBICORT [Suspect]
     Indication: CHRONIC OBSTRUCTIVE PULMONARY DISEASE
     Dosage: 160/4.5, 2 PUFFS BID
     Route: 055
     Dates: start: 2010
  2. B-12 [Concomitant]
     Indication: NASOPHARYNGITIS
     Dosage: 5000 MG
     Route: 048
     Dates: start: 20131009
  3. VITAMIN C [Concomitant]
     Indication: NASOPHARYNGITIS
     Dosage: 500 MG
     Route: 048
     Dates: start: 20131009

REACTIONS (4)
  - Nasopharyngitis [Unknown]
  - Rhinorrhoea [Unknown]
  - Intentional drug misuse [Unknown]
  - Drug dose omission [Unknown]
